FAERS Safety Report 8208483 (Version 2)
Quarter: 2013Q2

REPORT INFORMATION
  Report Type: Spontaneous
  Country: US (occurrence: None)
  Receive Date: 20110915
  Receipt Date: 20121016
  Transmission Date: 20140414
  Serious: Yes (Other)
  Sender: FDA-Public Use
  Company Number: 2010027053

PATIENT
  Age: 39 Year
  Sex: Female
  Weight: 66.5 kg

DRUGS (3)
  1. PRIVIGEN [Suspect]
     Indication: THROMBOCYTOPENIA NEONATAL
     Dosage: (2G/KG, 130 G, 1300 ML AT A RATE OF 300ML/HR
     Route: 042
     Dates: start: 20101004, end: 20101004
  2. PRENATAL VITAMINS (PRENATAL VITAMINS) [Concomitant]
  3. IRON (IRON) [Concomitant]

REACTIONS (3)
  - HAEMOLYSIS [None]
  - ANAEMIA [None]
  - HAEMOGLOBIN DECREASED [None]
